FAERS Safety Report 13494420 (Version 1)
Quarter: 2017Q2

REPORT INFORMATION
  Report Type: Spontaneous
  Country: US (occurrence: US)
  Receive Date: 20170428
  Receipt Date: 20170428
  Transmission Date: 20170830
  Serious: Yes (Hospitalization)
  Sender: FDA-Public Use
  Company Number: US-STRIDES ARCOLAB LIMITED-2017SP001526

PATIENT

DRUGS (4)
  1. TACROLIMUS. [Suspect]
     Active Substance: TACROLIMUS
     Indication: SECONDARY CEREBELLAR DEGENERATION
     Dosage: UNK, PER DAY
     Route: 048
  2. PREDNISONE. [Concomitant]
     Active Substance: PREDNISONE
     Indication: SECONDARY CEREBELLAR DEGENERATION
     Dosage: 60 MG, PER DAY
     Route: 048
  3. IMMUNOGLOBULIN INTRAVENOUS HUMAN [Concomitant]
     Active Substance: HUMAN IMMUNOGLOBULIN G
     Indication: SECONDARY CEREBELLAR DEGENERATION
     Dosage: UNK
     Route: 042
  4. TACROLIMUS. [Suspect]
     Active Substance: TACROLIMUS
     Dosage: UNK

REACTIONS (4)
  - Dysarthria [Unknown]
  - Asthenia [Unknown]
  - Tremor [Unknown]
  - Ataxia [Unknown]
